FAERS Safety Report 8244107-X (Version None)
Quarter: 2012Q1

REPORT INFORMATION
  Report Type: 
  Country: None (occurrence: None)
  Receive Date: 20120329
  Receipt Date: 20120326
  Transmission Date: 20120608
  Serious: Yes (Death)
  Sender: FDA-Public Use
  Company Number: US-ABBOTT-12P-163-0918558-00

PATIENT
  Sex: Male

DRUGS (7)
  1. AMBIEN [Concomitant]
     Indication: PRODUCT USED FOR UNKNOWN INDICATION
     Dates: end: 20120301
  2. PREZISTA [Concomitant]
     Indication: PRODUCT USED FOR UNKNOWN INDICATION
     Dates: end: 20120301
  3. NORVIR [Suspect]
     Indication: HIV INFECTION
     Dates: start: 20101001, end: 20120301
  4. ISENTRESS [Concomitant]
     Indication: HIV INFECTION
     Dates: end: 20120301
  5. INTELENCE [Concomitant]
     Indication: HIV INFECTION
     Dates: end: 20120301
  6. INSULIN [Concomitant]
     Indication: DIABETES MELLITUS
     Dates: end: 20120301
  7. EPIVIR [Concomitant]
     Indication: PRODUCT USED FOR UNKNOWN INDICATION
     Dates: end: 20120301

REACTIONS (2)
  - PNEUMONIA [None]
  - METASTATIC SQUAMOUS CELL CARCINOMA [None]
